FAERS Safety Report 13166117 (Version 1)
Quarter: 2017Q1

REPORT INFORMATION
  Report Type: Spontaneous
  Country: US (occurrence: US)
  Receive Date: 20170127
  Receipt Date: 20170127
  Transmission Date: 20170428
  Serious: Yes (Death)
  Sender: FDA-Public Use
  Company Number: None

PATIENT
  Age: 17 Year
  Sex: Female
  Weight: 62.2 kg

DRUGS (4)
  1. MERCAPTOPURINE. [Suspect]
     Active Substance: MERCAPTOPURINE
     Dates: end: 20170119
  2. VINCRISTINE SULFATE. [Suspect]
     Active Substance: VINCRISTINE SULFATE
     Dates: end: 20160116
  3. DEXAMETHASONE. [Suspect]
     Active Substance: DEXAMETHASONE
     Dates: end: 20170119
  4. METHOTREXATE. [Suspect]
     Active Substance: METHOTREXATE
     Dates: end: 20170116

REACTIONS (12)
  - Pulse absent [None]
  - Nausea [None]
  - Vomiting [None]
  - Metabolic acidosis [None]
  - Pyrexia [None]
  - Lethargy [None]
  - Respiratory acidosis [None]
  - Pulmonary haemorrhage [None]
  - Neutropenia [None]
  - Septic shock [None]
  - Bradycardia [None]
  - Sinusitis [None]

NARRATIVE: CASE EVENT DATE: 20170119
